FAERS Safety Report 25765927 (Version 1)
Quarter: 2025Q3

REPORT INFORMATION
  Report Type: Spontaneous
  Country: US (occurrence: US)
  Receive Date: 20250905
  Receipt Date: 20250905
  Transmission Date: 20251021
  Serious: No
  Sender: DOMPE FARMACEUTICI
  Company Number: US-FARMAPROD-202407-2624

PATIENT
  Sex: Female
  Weight: 73.94 kg

DRUGS (16)
  1. OXERVATE [Suspect]
     Active Substance: CENEGERMIN-BKBJ
     Indication: Neurotrophic keratopathy
     Route: 047
     Dates: start: 20240624
  2. ACETAMINOPHEN [Concomitant]
     Active Substance: ACETAMINOPHEN
  3. MINERALS\VITAMINS [Concomitant]
     Active Substance: MINERALS\VITAMINS
  4. FLUTICASONE PROPIONATE [Concomitant]
     Active Substance: FLUTICASONE PROPIONATE
  5. NAPROXEN [Concomitant]
     Active Substance: NAPROXEN
  6. LISINOPRIL [Concomitant]
     Active Substance: LISINOPRIL
  7. CARBIDOPA\LEVODOPA [Concomitant]
     Active Substance: CARBIDOPA\LEVODOPA
  8. BUDESONIDE [Concomitant]
     Active Substance: BUDESONIDE
  9. HYDROCODONE; ACETAMINOPHEN [Concomitant]
  10. BACLOFEN [Concomitant]
     Active Substance: BACLOFEN
  11. POLYETHYLENE GLYCOL 3350 [Concomitant]
     Active Substance: POLYETHYLENE GLYCOL 3350
  12. BISACODYL [Concomitant]
     Active Substance: BISACODYL
  13. DOCUSATE SODIUM [Concomitant]
     Active Substance: DOCUSATE SODIUM
  14. CEPHALEXIN [Concomitant]
     Active Substance: CEPHALEXIN
  15. ALBUTEROL SULFATE [Concomitant]
     Active Substance: ALBUTEROL SULFATE
  16. CELECOXIB [Concomitant]
     Active Substance: CELECOXIB

REACTIONS (1)
  - Treatment noncompliance [Unknown]
